FAERS Safety Report 12960190 (Version 1)
Quarter: 2016Q4

REPORT INFORMATION
  Report Type: Spontaneous
  Country: US (occurrence: US)
  Receive Date: 20161119
  Receipt Date: 20161119
  Transmission Date: 20170207
  Serious: No
  Sender: FDA-Public Use
  Company Number: None

PATIENT
  Age: 70 Year
  Sex: Female
  Weight: 63 kg

DRUGS (5)
  1. SYNTHROID [Concomitant]
     Active Substance: LEVOTHYROXINE SODIUM
  2. BIOTIN [Concomitant]
     Active Substance: BIOTIN
  3. TRAMADOL HCL [Suspect]
     Active Substance: TRAMADOL HYDROCHLORIDE
     Indication: BURSITIS
     Dosage: ?          QUANTITY:20 TABLET(S);?
     Route: 048
     Dates: start: 20161016, end: 20161030
  4. METAGENIC VITAMINS WITHOUT IRON [Concomitant]
  5. VITAMIN D [Concomitant]
     Active Substance: CHOLECALCIFEROL

REACTIONS (5)
  - Hypoaesthesia [None]
  - Sleep disorder [None]
  - Paraesthesia [None]
  - Muscle spasms [None]
  - Asthenia [None]

NARRATIVE: CASE EVENT DATE: 20161101
